FAERS Safety Report 9506363 (Version 1)
Quarter: 2013Q1

REPORT INFORMATION
  Report Type: Spontaneous
  Country: US (occurrence: None)
  Receive Date: 20130301
  Receipt Date: 20130301
  Transmission Date: 20140127
  Serious: Yes (Hospitalization)
  Sender: FDA-Public Use
  Company Number: RB-47565-2012

PATIENT
  Sex: Female

DRUGS (4)
  1. SUBOXONE [Suspect]
     Indication: DRUG DEPENDENCE
     Dosage: SUBLINGUAL
     Dates: start: 201206
  2. NICOTINE [Concomitant]
  3. CONCERTA [Concomitant]
  4. CELEXA [Concomitant]

REACTIONS (2)
  - Drug dependence [None]
  - Substance abuse [None]
